FAERS Safety Report 14974715 (Version 1)
Quarter: 2018Q2

REPORT INFORMATION
  Report Type: Spontaneous
  Country: US (occurrence: US)
  Receive Date: 20180516
  Receipt Date: 20180516
  Transmission Date: 20180711
  Serious: Yes (Disabling)
  Sender: FDA-Public Use
  Company Number: None

PATIENT
  Age: 38 Year
  Sex: Female
  Weight: 49.5 kg

DRUGS (9)
  1. CELLCEPT [Suspect]
     Active Substance: MYCOPHENOLATE MOFETIL\MYCOPHENOLATE MOFETIL HYDROCHLORIDE
     Indication: MUSCULAR WEAKNESS
     Dosage: ?          QUANTITY:120 TABLET(S);?
     Route: 048
  2. FLONAISE [Concomitant]
  3. CELLCEPT [Suspect]
     Active Substance: MYCOPHENOLATE MOFETIL\MYCOPHENOLATE MOFETIL HYDROCHLORIDE
     Indication: SYSTEMIC LUPUS ERYTHEMATOSUS
     Dosage: ?          QUANTITY:120 TABLET(S);?
     Route: 048
  4. MESTINON [Concomitant]
     Active Substance: PYRIDOSTIGMINE BROMIDE
  5. ALBUTEROL. [Concomitant]
     Active Substance: ALBUTEROL
  6. LAMICTAL [Concomitant]
     Active Substance: LAMOTRIGINE
  7. CLARITIN [Concomitant]
     Active Substance: LORATADINE
  8. MONTELUKAST [Concomitant]
     Active Substance: MONTELUKAST SODIUM
  9. L-LYSINE [Concomitant]
     Active Substance: LYSINE

REACTIONS (6)
  - Decreased appetite [None]
  - Diarrhoea [None]
  - Nausea [None]
  - Headache [None]
  - Vomiting [None]
  - Ageusia [None]

NARRATIVE: CASE EVENT DATE: 20171101
